FAERS Safety Report 16586828 (Version 3)
Quarter: 2019Q3

REPORT INFORMATION
  Report Type: Spontaneous
  Country: US (occurrence: US)
  Receive Date: 20190717
  Receipt Date: 20190807
  Transmission Date: 20191004
  Serious: Yes (Other)
  Sender: FDA-Public Use
  Company Number: US-SANOFI-AVENTIS-2010SA025678

PATIENT
  Age: 73 Year
  Sex: Female

DRUGS (5)
  1. LANTUS [Suspect]
     Active Substance: INSULIN GLARGINE
     Indication: TYPE 2 DIABETES MELLITUS
     Dosage: 76 DF,QD
     Route: 058
  2. LANTUS [Suspect]
     Active Substance: INSULIN GLARGINE
     Dosage: 50 U, QD
     Route: 065
     Dates: start: 2004
  3. LANTUS [Suspect]
     Active Substance: INSULIN GLARGINE
     Dosage: 76 DF,QD
     Route: 058
  4. LANTUS [Suspect]
     Active Substance: INSULIN GLARGINE
     Dosage: 76 DF,QD
     Route: 058
  5. LANTUS [Suspect]
     Active Substance: INSULIN GLARGINE
     Dosage: 76 DF,QD
     Route: 058

REACTIONS (5)
  - Injection site haemorrhage [Not Recovered/Not Resolved]
  - Unevaluable event [Unknown]
  - Product quality issue [Unknown]
  - Injection site bruising [Not Recovered/Not Resolved]
  - Colon cancer [Unknown]
